FAERS Safety Report 23198720 (Version 2)
Quarter: 2023Q4

REPORT INFORMATION
  Report Type: Spontaneous
  Country: CN (occurrence: CN)
  Receive Date: 20231117
  Receipt Date: 20231123
  Transmission Date: 20240109
  Serious: Yes (Other)
  Sender: FDA-Public Use
  Company Number: CN-PFIZER INC-PV202300186486

PATIENT
  Age: 61 Year
  Sex: Male
  Weight: 65 kg

DRUGS (1)
  1. NIRMATRELVIR\RITONAVIR [Suspect]
     Active Substance: NIRMATRELVIR\RITONAVIR
     Indication: Pneumonia viral
     Dosage: [NIRMATRELVIR 300 MG]/[RITONAVIR 100 MG]; 2X/DAY
     Route: 048
     Dates: start: 20230814, end: 20230818

REACTIONS (3)
  - Hepatic function abnormal [Recovering/Resolving]
  - Alanine aminotransferase increased [Recovering/Resolving]
  - Off label use [Unknown]

NARRATIVE: CASE EVENT DATE: 20230814
